FAERS Safety Report 7247499-3 (Version None)
Quarter: 2011Q1

REPORT INFORMATION
  Report Type: 
  Country: None (occurrence: None)
  Receive Date: 20110127
  Receipt Date: 20110121
  Transmission Date: 20110831
  Serious: Yes (Other)
  Sender: FDA-Public Use
  Company Number: BR-ROCHE-735361

PATIENT
  Sex: Male
  Weight: 69 kg

DRUGS (6)
  1. MIOFLEX [Concomitant]
     Dosage: AT NIGHT
  2. COLTRAX [Concomitant]
  3. RIVOTRIL [Suspect]
     Indication: PANIC REACTION
     Dosage: CO-INDICATION: ANXIETY AND NERVOUSNESS
     Route: 060
     Dates: start: 20100701
  4. RANITIDINE [Concomitant]
     Indication: GASTRIC DISORDER
     Dosage: AS NEEDED, CO-INDICATION: SPINE DISORDER
     Route: 048
  5. TILATIL [Concomitant]
  6. DORFLEX [Concomitant]
     Dosage: AS NEEDED

REACTIONS (15)
  - INTERVERTEBRAL DISC PROTRUSION [None]
  - NAUSEA [None]
  - TENSION [None]
  - MYALGIA [None]
  - SOMNOLENCE [None]
  - HEADACHE [None]
  - ILL-DEFINED DISORDER [None]
  - MEDICATION ERROR [None]
  - ANXIETY [None]
  - NECK PAIN [None]
  - FATIGUE [None]
  - ABDOMINAL PAIN UPPER [None]
  - FIBROMYALGIA [None]
  - DRUG INEFFECTIVE [None]
  - MUSCLE TWITCHING [None]
